FAERS Safety Report 8292026-5 (Version None)
Quarter: 2012Q2

REPORT INFORMATION
  Report Type: 
  Country: None (occurrence: None)
  Receive Date: 20120417
  Receipt Date: 20120413
  Transmission Date: 20120825
  Serious: No
  Sender: FDA-Public Use
  Company Number: US-PFIZER INC-2012030859

PATIENT
  Sex: Male
  Weight: 113.38 kg

DRUGS (1)
  1. IBUPROFEN (ADVIL) [Suspect]
     Indication: HEADACHE
     Dosage: 400 MG, UNK
     Route: 048

REACTIONS (2)
  - VOMITING [None]
  - NAUSEA [None]
